FAERS Safety Report 8408389-3 (Version None)
Quarter: 2012Q2

REPORT INFORMATION
  Report Type: 
  Country: None (occurrence: None)
  Receive Date: 20120604
  Receipt Date: 20120528
  Transmission Date: 20120825
  Serious: Yes (Other)
  Sender: FDA-Public Use
  Company Number: NZ-ROCHE-1048934

PATIENT
  Sex: Female

DRUGS (5)
  1. PREDNISONE TAB [Concomitant]
     Dosage: 40G/DAY WITH TAPERING SCHEDULE
  2. MABTHERA [Concomitant]
     Dosage: 1 DOSE IN DEC, 2ND IN JAN
  3. PREDNISONE TAB [Concomitant]
  4. ACTEMRA [Suspect]
     Indication: JUVENILE ARTHRITIS
  5. PREDNISONE TAB [Concomitant]
     Dosage: 60.MG/DAY TO NILL

REACTIONS (4)
  - INFECTION [None]
  - GANGRENE [None]
  - NAIL INFECTION [None]
  - DRUG INEFFECTIVE [None]
